FAERS Safety Report 17660705 (Version 1)
Quarter: 2020Q2

REPORT INFORMATION
  Report Type: Spontaneous
  Country: US (occurrence: US)
  Receive Date: 20200411
  Receipt Date: 20200411
  Transmission Date: 20200713
  Serious: Yes (Other)
  Sender: FDA-Public Use
  Company Number: None

PATIENT
  Age: 59 Month
  Sex: Female
  Weight: 48.6 kg

DRUGS (1)
  1. DYSPORT [Suspect]
     Active Substance: ABOBOTULINUMTOXINA
     Indication: SKIN WRINKLING
     Dates: start: 20200128

REACTIONS (3)
  - Dry eye [None]
  - Dysgraphia [None]
  - Muscular weakness [None]

NARRATIVE: CASE EVENT DATE: 20200131
